FAERS Safety Report 6821260-3 (Version None)
Quarter: 2010Q2

REPORT INFORMATION
  Report Type: 
  Country: None (occurrence: None)
  Receive Date: 20100630
  Receipt Date: 20100614
  Transmission Date: 20101027
  Serious: Yes (Death)
  Sender: FDA-Public Use
  Company Number: 1-22778503

PATIENT
  Age: 2 Year
  Sex: Female
  Weight: 15.9666 kg

DRUGS (10)
  1. AMMONUL [Suspect]
     Indication: HYPERAMMONAEMIA
     Dosage: 4000/4000 MG, DAILY,
     Dates: start: 20100521, end: 20100522
  2. DOPAMINE HCL [Concomitant]
  3. NORADRENALINE [Concomitant]
  4. KETANEST [Concomitant]
  5. CEFOTAXIME SODIUM [Concomitant]
  6. FLUCLOXACILLIN [Concomitant]
  7. HYDROCORTISONE [Concomitant]
  8. HAEMOCOMPLETTAN [Concomitant]
  9. INSULIN [Concomitant]
  10. FUROSEMIDE [Concomitant]

REACTIONS (9)
  - AMMONIA INCREASED [None]
  - ASPARTATE AMINOTRANSFERASE INCREASED [None]
  - BLOOD LACTATE DEHYDROGENASE INCREASED [None]
  - DISSEMINATED INTRAVASCULAR COAGULATION [None]
  - EPSTEIN-BARR VIRUS INFECTION [None]
  - HISTIOCYTOSIS HAEMATOPHAGIC [None]
  - MULTI-ORGAN FAILURE [None]
  - RESPIRATORY FAILURE [None]
  - SHOCK [None]
